FAERS Safety Report 5445712-6 (Version None)
Quarter: 2007Q3

REPORT INFORMATION
  Report Type: 
  Country: None (occurrence: None)
  Receive Date: 20070904
  Receipt Date: 20070828
  Transmission Date: 20080115
  Serious: Yes (Life-Threatening, Disabling, Other)
  Sender: FDA-Public Use
  Company Number: SP01428

PATIENT
  Age: 42 Year
  Sex: Female
  Weight: 61.6892 kg

DRUGS (1)
  1. OSMOPREP [Suspect]
     Indication: COLONOSCOPY
     Dosage: SINGLE DOSE, ORAL
     Route: 048
     Dates: start: 20070801, end: 20070801

REACTIONS (10)
  - ANAPHYLACTIC REACTION [None]
  - BRONCHOSPASM [None]
  - CHILLS [None]
  - DYSPNOEA [None]
  - HYPERSENSITIVITY [None]
  - LOCAL SWELLING [None]
  - PHARYNGEAL OEDEMA [None]
  - PHARYNGOLARYNGEAL PAIN [None]
  - SOMNOLENCE [None]
  - VOMITING [None]
